FAERS Safety Report 5764936-1 (Version None)
Quarter: 2008Q2

REPORT INFORMATION
  Report Type: 
  Country: None (occurrence: None)
  Receive Date: 20080611
  Receipt Date: 20080602
  Transmission Date: 20081010
  Serious: Yes (Other)
  Sender: FDA-Public Use
  Company Number: A0732258A

PATIENT
  Age: 59 Year
  Sex: Male
  Weight: 79.5 kg

DRUGS (15)
  1. LAMICTAL [Suspect]
     Indication: DRUG USE FOR UNKNOWN INDICATION
     Dosage: 25MG UNKNOWN
     Route: 048
  2. DILANTIN [Suspect]
     Dosage: 400MG PER DAY
     Route: 048
     Dates: start: 20071001
  3. CALCIUM + D [Concomitant]
  4. VITAMINS [Concomitant]
  5. OXYCODONE AND ACETAMINOPHEN [Concomitant]
  6. NORTRIPTYLINE HCL [Concomitant]
  7. PRAZOSIN HCL [Concomitant]
  8. IBUROFEN [Concomitant]
  9. BACLOFEN [Concomitant]
  10. FOLIC ACID [Concomitant]
  11. ASPIRIN [Concomitant]
  12. OXYBUTYNIN CHLORIDE [Concomitant]
  13. DIAZEPAM [Concomitant]
  14. MECLIZINE [Concomitant]
  15. SENNOSIDES [Concomitant]

REACTIONS (4)
  - BLOOD TEST ABNORMAL [None]
  - FEELING ABNORMAL [None]
  - GRAND MAL CONVULSION [None]
  - TREMOR [None]
